FAERS Safety Report 16081391 (Version 1)
Quarter: 2019Q1

REPORT INFORMATION
  Report Type: Spontaneous
  Country: CA (occurrence: CA)
  Receive Date: 20190316
  Receipt Date: 20190316
  Transmission Date: 20190418
  Serious: Yes (Death)
  Sender: FDA-Public Use
  Company Number: CA-AUROBINDO-AUR-APL-2019-012907

PATIENT
  Age: 37 Year
  Sex: Male

DRUGS (16)
  1. CLINDAMYCIN. [Suspect]
     Active Substance: CLINDAMYCIN
     Indication: AEROMONAS INFECTION
     Dosage: 600 MILLIGRAM, 3 EVERY DAY
     Route: 042
  2. CICLOSPORIN [Concomitant]
     Active Substance: CYCLOSPORINE
     Indication: APLASTIC ANAEMIA
     Dosage: 225 MILLIGRAM, TWO TIMES A DAY
     Route: 048
  3. PANTOLOC [Concomitant]
     Active Substance: PANTOPRAZOLE SODIUM
     Indication: PRODUCT USED FOR UNKNOWN INDICATION
     Dosage: 40 MILLIGRAM, EVERY DAY
     Route: 048
  4. METRONIDAZOLE. [Suspect]
     Active Substance: METRONIDAZOLE
     Indication: EVIDENCE BASED TREATMENT
     Dosage: 500 MILLIGRAM, 2 EVERY DAY
     Route: 048
  5. CIPROFLOXACIN. [Suspect]
     Active Substance: CIPROFLOXACIN
     Indication: AEROMONAS INFECTION
     Dosage: 500 MILLIGRAM, TWO TIMES A DAY
     Route: 048
  6. METRONIDAZOLE. [Suspect]
     Active Substance: METRONIDAZOLE
     Indication: AEROMONAS INFECTION
     Dosage: UNK
     Route: 065
  7. PIPERACILLIN AND TAZOBACTAM [Suspect]
     Active Substance: PIPERACILLIN SODIUM\TAZOBACTAM SODIUM
     Indication: EVIDENCE BASED TREATMENT
     Dosage: 3.375 GRAM, 4 EVERY DAY
     Route: 042
  8. ANTITHYMOCYTE IMMUNOGLOBULIN (HORSE) [Concomitant]
     Active Substance: EQUINE THYMOCYTE IMMUNE GLOBULIN
     Indication: APLASTIC ANAEMIA
     Dosage: 40 MILLIGRAM/KILOGRAM, EVERY DAY
     Route: 065
  9. DAPSONE. [Concomitant]
     Active Substance: DAPSONE
     Indication: ANTIFUNGAL PROPHYLAXIS
     Dosage: 50 MILLIGRAM, EVERY DAY
     Route: 048
  10. VALTREX [Concomitant]
     Active Substance: VALACYCLOVIR HYDROCHLORIDE
     Indication: PRODUCT USED FOR UNKNOWN INDICATION
     Dosage: 500 MILLIGRAM, EVERY DAY
     Route: 048
  11. VANCOMYCIN HYDROCHLORIDE. [Suspect]
     Active Substance: VANCOMYCIN HYDROCHLORIDE
     Indication: EVIDENCE BASED TREATMENT
     Dosage: 1.5 GRAM, 2 EVERY DAY
     Route: 042
  12. VANCOMYCIN HYDROCHLORIDE. [Suspect]
     Active Substance: VANCOMYCIN HYDROCHLORIDE
     Indication: AEROMONAS INFECTION
     Dosage: UNK
     Route: 065
  13. PREDNISONE. [Concomitant]
     Active Substance: PREDNISONE
     Indication: APLASTIC ANAEMIA
     Dosage: 1 MILLIGRAM/KILOGRAM EVERY DAY
     Route: 065
  14. PIPERACILLIN AND TAZOBACTAM [Suspect]
     Active Substance: PIPERACILLIN SODIUM\TAZOBACTAM SODIUM
     Indication: ESCHERICHIA BACTERAEMIA
     Dosage: UNK
     Route: 065
  15. IMMUNE GLOBULIN IV [Concomitant]
     Active Substance: HUMAN IMMUNOGLOBULIN G
     Indication: AEROMONAS INFECTION
     Dosage: 2 GRAM
     Route: 042
  16. MEROPENEM INJECTION [Suspect]
     Active Substance: MEROPENEM
     Indication: AEROMONAS INFECTION
     Dosage: 1000 MILLIGRAM, 3 EVERY DAY
     Route: 042

REACTIONS (1)
  - Drug ineffective [Fatal]
